FAERS Safety Report 24881205 (Version 1)
Quarter: 2025Q1

REPORT INFORMATION
  Report Type: Spontaneous
  Country: CN (occurrence: CN)
  Receive Date: 20250124
  Receipt Date: 20250124
  Transmission Date: 20250408
  Serious: Yes (Hospitalization, Other)
  Sender: NOVO NORDISK
  Company Number: CN-NOVOPROD-1351473

PATIENT
  Age: 53 Year
  Sex: Male
  Weight: 66 kg

DRUGS (18)
  1. OZEMPIC [Suspect]
     Active Substance: SEMAGLUTIDE
     Indication: Type 2 diabetes mellitus
     Dosage: 1 MG, QW
     Route: 058
     Dates: start: 20231103, end: 20240105
  2. METFORMIN HYDROCHLORIDE [Suspect]
     Active Substance: METFORMIN HYDROCHLORIDE
     Indication: Type 2 diabetes mellitus
     Dosage: 0.5 G, TID
     Route: 048
     Dates: start: 20230922
  3. POTASSIUM CHLORIDE AND GLUCOSE [Concomitant]
     Indication: Fluid retention
     Dates: start: 20240109, end: 20240109
  4. INSULIN NOS [Concomitant]
     Active Substance: INSULIN NOS
     Indication: Type 2 diabetes mellitus
     Dates: start: 20240109, end: 20240109
  5. SODIUM CHLORIDE [Concomitant]
     Active Substance: SODIUM CHLORIDE
     Indication: Fluid retention
     Dates: start: 20240109, end: 20240109
  6. SODIUM CHLORIDE [Concomitant]
     Active Substance: SODIUM CHLORIDE
     Dates: start: 20240112, end: 20240119
  7. LANSOPRAZOLE [Concomitant]
     Active Substance: LANSOPRAZOLE
     Route: 048
     Dates: start: 20240113, end: 20240119
  8. LANSOPRAZOLE [Concomitant]
     Active Substance: LANSOPRAZOLE
     Route: 048
     Dates: start: 20240111, end: 20240111
  9. LANSOPRAZOLE [Concomitant]
     Active Substance: LANSOPRAZOLE
     Indication: Gastrointestinal disorder
     Route: 048
     Dates: start: 20240109, end: 20240112
  10. EPALRESTAT [Concomitant]
     Active Substance: EPALRESTAT
     Indication: Nerve injury
     Route: 048
     Dates: start: 20240111, end: 20240112
  11. IDEBENONE [Concomitant]
     Active Substance: IDEBENONE
     Indication: Cerebral disorder
     Route: 048
     Dates: start: 20240111, end: 20240112
  12. IDEBENONE [Concomitant]
     Active Substance: IDEBENONE
     Route: 048
     Dates: start: 20240112, end: 20240119
  13. LEVOFLOXACIN HYDROCHLORIDE [Concomitant]
     Active Substance: LEVOFLOXACIN HYDROCHLORIDE
     Indication: Keratitis
     Dates: start: 20240112, end: 20240112
  14. VITAMIN B1 [Concomitant]
     Active Substance: THIAMINE HYDROCHLORIDE
     Indication: Nerve injury
     Route: 048
     Dates: start: 20240112, end: 20240119
  15. GALANTAMINE HYDROBROMIDE [Concomitant]
     Active Substance: GALANTAMINE HYDROBROMIDE
     Indication: Nerve injury
     Route: 030
     Dates: start: 20240112, end: 20240119
  16. CYANOCOBALAMIN [Concomitant]
     Active Substance: CYANOCOBALAMIN
     Indication: Nerve injury
     Dates: start: 20240112, end: 20240119
  17. ASPIRIN [Concomitant]
     Active Substance: ASPIRIN
     Indication: Anti-platelet antibody
     Route: 048
     Dates: start: 20240112, end: 20240119
  18. METHYLCOBALAMIN [Concomitant]
     Active Substance: METHYLCOBALAMIN
     Indication: Nerve injury
     Route: 030
     Dates: start: 20240109, end: 20240112

REACTIONS (15)
  - Polyneuropathy [Recovering/Resolving]
  - Diabetic ketosis [Recovered/Resolved]
  - Lacunar infarction [Not Recovered/Not Resolved]
  - Paranasal cyst [Not Recovered/Not Resolved]
  - Cerebral arteriosclerosis [Not Recovered/Not Resolved]
  - Carotid artery disease [Not Recovered/Not Resolved]
  - Neuritis cranial [Recovering/Resolving]
  - Vision blurred [Not Recovered/Not Resolved]
  - Sinusitis [Not Recovered/Not Resolved]
  - Hepatic steatosis [Not Recovered/Not Resolved]
  - Benign prostatic hyperplasia [Not Recovered/Not Resolved]
  - Nausea [Not Recovered/Not Resolved]
  - Vomiting [Not Recovered/Not Resolved]
  - Dizziness [Recovered/Resolved]
  - Asthenia [Not Recovered/Not Resolved]

NARRATIVE: CASE EVENT DATE: 20240105
